FAERS Safety Report 4710126-0 (Version None)
Quarter: 2005Q3

REPORT INFORMATION
  Report Type: 
  Country: None (occurrence: None)
  Receive Date: 20050708
  Receipt Date: 20050708
  Transmission Date: 20060218
  Serious: No
  Sender: FDA-Public Use
  Company Number: None

PATIENT
  Sex: Female
  Weight: 80.8 kg

DRUGS (4)
  1. DOCETAXEL   80MG   AVENTIS [Suspect]
     Indication: BREAST CANCER
     Dosage: 140MG   IV
     Route: 042
     Dates: start: 20050525
  2. DOCETAXEL   + 3 X 20MG     AVENTIS [Suspect]
     Dosage: 140MG   IV
     Route: 042
     Dates: start: 20050610
  3. DEXAMETHASONE [Concomitant]
  4. DIPHENHYDRAMINE HCL [Concomitant]

REACTIONS (6)
  - BLISTER [None]
  - ERYTHEMA [None]
  - FLUSHING [None]
  - INFUSION RELATED REACTION [None]
  - INFUSION SITE SWELLING [None]
  - PAIN [None]
